FAERS Safety Report 14216459 (Version 4)
Quarter: 2021Q4

REPORT INFORMATION
  Report Type: Report from Study
  Country: GR (occurrence: GR)
  Receive Date: 20171122
  Receipt Date: 20211118
  Transmission Date: 20220304
  Serious: Yes (Other)
  Sender: FDA-Public Use
  Company Number: GR-ABBVIE-17K-066-2170962-00

PATIENT
  Sex: Male
  Weight: 80 kg

DRUGS (15)
  1. CARBIDOPA\LEVODOPA [Suspect]
     Active Substance: CARBIDOPA\LEVODOPA
     Indication: Parkinson^s disease
     Dosage: MORNING DOSE: 13.5ML; CONTINUOUS RATE: 3.8ML/H; EXTRA DOSE: 2.2ML
     Route: 050
     Dates: start: 201111
  2. CARBIDOPA\LEVODOPA [Suspect]
     Active Substance: CARBIDOPA\LEVODOPA
     Dosage: MORNING DOSE: 13.5 ML; CONTINUOUS RATE: 3.9 ML/H; EXTRA DOSE: 2.2 ML
     Route: 050
  3. CARBIDOPA\LEVODOPA [Suspect]
     Active Substance: CARBIDOPA\LEVODOPA
     Dosage: MORNING DOSE: 13.5 ML; CONTINUOUS RATE: 4.5 ML/H; EXTRA DOSE: 2.2 ML
     Route: 050
  4. REQUIP [Concomitant]
     Active Substance: ROPINIROLE HYDROCHLORIDE
     Indication: Parkinson^s disease
     Route: 048
  5. REQUIP [Concomitant]
     Active Substance: ROPINIROLE HYDROCHLORIDE
     Dosage: DECREASED DOSE
     Route: 048
     Dates: start: 20170901
  6. SYMMETREL [Concomitant]
     Active Substance: AMANTADINE HYDROCHLORIDE
     Indication: Parkinson^s disease
     Route: 048
  7. ZOLPIDEM TARTRATE [Concomitant]
     Active Substance: ZOLPIDEM TARTRATE
     Indication: Insomnia
     Dosage: ONCE AT NIGHT
     Route: 048
  8. ZOLPIDEM TARTRATE [Concomitant]
     Active Substance: ZOLPIDEM TARTRATE
     Route: 048
  9. BROMAZEPAM [Concomitant]
     Active Substance: BROMAZEPAM
     Indication: Anxiety
     Dosage: ONE WHEN REQUIRED
     Route: 048
  10. DULCOSOFT [Concomitant]
     Indication: Constipation
     Route: 048
     Dates: start: 20170812
  11. DUPHALAC [Concomitant]
     Active Substance: LACTULOSE
     Indication: Constipation
     Dosage: 20 CUBIC CENTIMETER
     Route: 048
     Dates: start: 20170812
  12. LOSEC [Concomitant]
     Active Substance: OMEPRAZOLE
     Indication: Product used for unknown indication
     Route: 048
  13. TIAQUEL [Concomitant]
     Indication: Product used for unknown indication
     Dosage: UNIT DOSE: 12.5 MG, FORM STRENGTH: 25 MG?1X1 (NIGHT)
     Route: 048
  14. LYRICA [Concomitant]
     Active Substance: PREGABALIN
     Indication: Product used for unknown indication
     Dosage: 1X1 (AT NOON)
     Route: 048
  15. LYRICA [Concomitant]
     Active Substance: PREGABALIN
     Dosage: 1X2 (MORNING-NIGHT)
     Route: 048

REACTIONS (6)
  - Basal cell carcinoma [Not Recovered/Not Resolved]
  - Ear haemorrhage [Unknown]
  - Hypotonia [Not Recovered/Not Resolved]
  - Muscular weakness [Not Recovered/Not Resolved]
  - Gait inability [Unknown]
  - Gait disturbance [Not Recovered/Not Resolved]

NARRATIVE: CASE EVENT DATE: 20150101
